FAERS Safety Report 15794304 (Version 1)
Quarter: 2019Q1

REPORT INFORMATION
  Report Type: Spontaneous
  Country: IT (occurrence: IT)
  Receive Date: 20190107
  Receipt Date: 20190107
  Transmission Date: 20190417
  Serious: Yes (Death)
  Sender: FDA-Public Use
  Company Number: IT-PFIZER INC-2019006099

PATIENT
  Age: 90 Year
  Sex: Female

DRUGS (4)
  1. VALSARTAN. [Concomitant]
     Active Substance: VALSARTAN
     Indication: HYPERTENSION
     Route: 048
  2. CEFTRIAXONE. [Interacting]
     Active Substance: CEFTRIAXONE
     Indication: PNEUMONITIS
     Dosage: 2 G, DAILY
     Route: 042
     Dates: start: 20181120, end: 20181126
  3. LERCANIDIPINE [Concomitant]
     Active Substance: LERCANIDIPINE
     Route: 048
  4. AZITHROMYCIN ANHYDROUS. [Suspect]
     Active Substance: AZITHROMYCIN ANHYDROUS
     Indication: PNEUMONITIS
     Dosage: 500 MG, DAILY
     Route: 048
     Dates: start: 20181120, end: 20181123

REACTIONS (2)
  - Drug interaction [Fatal]
  - Toxic epidermal necrolysis [Fatal]

NARRATIVE: CASE EVENT DATE: 20181125
